FAERS Safety Report 19589977 (Version 1)
Quarter: 2021Q3

REPORT INFORMATION
  Report Type: Spontaneous
  Country: US (occurrence: US)
  Receive Date: 20210721
  Receipt Date: 20210721
  Transmission Date: 20211014
  Serious: No
  Sender: FDA-Public Use
  Company Number: US-SA-2021SA224342

PATIENT
  Age: 67 Year
  Sex: Male
  Weight: 80.7 kg

DRUGS (2)
  1. NOVOLOG [Interacting]
     Active Substance: INSULIN ASPART
     Dosage: UNK
     Route: 065
  2. LANTUS SOLOSTAR [Suspect]
     Active Substance: INSULIN GLARGINE
     Indication: DIABETES MELLITUS
     Dosage: 10 IU, QD
     Route: 065

REACTIONS (3)
  - Rash [Unknown]
  - Drug interaction [Unknown]
  - Dizziness [Unknown]
